FAERS Safety Report 22029481 (Version 1)
Quarter: 2023Q1

REPORT INFORMATION
  Report Type: Spontaneous
  Country: US (occurrence: US)
  Receive Date: 20230223
  Receipt Date: 20230223
  Transmission Date: 20230418
  Serious: No
  Sender: FDA-Public Use
  Company Number: US-GLAXOSMITHKLINE-USCH2023AMR007533

PATIENT
  Age: 85 Year
  Sex: Male
  Weight: 64.4 kg

DRUGS (7)
  1. FLUTICASONE PROPIONATE [Suspect]
     Active Substance: FLUTICASONE PROPIONATE
     Indication: Nasal congestion
     Dosage: UNK
  2. AZELASTINE [Suspect]
     Active Substance: AZELASTINE
     Indication: Nasal congestion
     Dosage: UNK
  3. TYVASO [Suspect]
     Active Substance: TREPROSTINIL
     Indication: Pulmonary arterial hypertension
     Dosage: 16 UG, QID
     Route: 055
     Dates: start: 20221212
  4. TYVASO [Suspect]
     Active Substance: TREPROSTINIL
     Dosage: 32 UG
     Route: 055
  5. TYVASO [Suspect]
     Active Substance: TREPROSTINIL
     Dosage: 32 UG
     Route: 055
  6. OFEV [Concomitant]
     Active Substance: NINTEDANIB
     Indication: Product used for unknown indication
     Dosage: UNK
  7. AMLODIPINE BESYLATE [Concomitant]
     Active Substance: AMLODIPINE BESYLATE
     Indication: Product used for unknown indication
     Dosage: UNK

REACTIONS (15)
  - Nasal congestion [Not Recovered/Not Resolved]
  - Rhinorrhoea [Unknown]
  - Cough [Unknown]
  - Head discomfort [Unknown]
  - Rash pruritic [Unknown]
  - Sinusitis [Unknown]
  - Dry skin [Unknown]
  - Therapy non-responder [Unknown]
  - Seasonal allergy [Unknown]
  - Choking sensation [Unknown]
  - Nasopharyngitis [Unknown]
  - Throat irritation [Unknown]
  - Oropharyngeal pain [Unknown]
  - Sinusitis [Unknown]
  - Wrong technique in product usage process [Unknown]

NARRATIVE: CASE EVENT DATE: 20230103
